FAERS Safety Report 19443634 (Version 2)
Quarter: 2022Q2

REPORT INFORMATION
  Report Type: Spontaneous
  Country: GB (occurrence: GB)
  Receive Date: 20210621
  Receipt Date: 20220406
  Transmission Date: 20220721
  Serious: Yes (Death, Other)
  Sender: FDA-Public Use
  Company Number: None

PATIENT
  Age: 67 Year
  Sex: Male
  Weight: 116 kg

DRUGS (25)
  1. CARBOPLATIN [Suspect]
     Active Substance: CARBOPLATIN
     Indication: Chemotherapy
     Dosage: 625 MG (2ND CYCLE), CYCLIC
     Route: 042
     Dates: start: 20210224
  2. BEVACIZUMAB [Suspect]
     Active Substance: BEVACIZUMAB
     Indication: Chemotherapy
     Dosage: UNK, CYCLIC
     Dates: start: 20210224
  3. PEMETREXED [Suspect]
     Active Substance: PEMETREXED
     Indication: Chemotherapy
     Dosage: UNK, CYCLIC
     Dates: start: 20210224
  4. APREPITANT [Concomitant]
     Active Substance: APREPITANT
     Indication: Ill-defined disorder
     Dosage: 125 MG ON DAY 1
     Dates: start: 20210224, end: 20210224
  5. APREPITANT [Concomitant]
     Active Substance: APREPITANT
     Dosage: 80 MG ON DAY 2 AND 3
     Dates: start: 20210225, end: 20210226
  6. BENZYDAMINE HYDROCHLORIDE [Concomitant]
     Active Substance: BENZYDAMINE HYDROCHLORIDE
     Indication: Ill-defined disorder
     Dosage: UNK
  7. DEXAMETHASONE [Concomitant]
     Active Substance: DEXAMETHASONE
     Indication: Ill-defined disorder
     Dosage: 4 MG
  8. FOLIC ACID [Concomitant]
     Active Substance: FOLIC ACID
     Indication: Ill-defined disorder
     Dosage: 400 MG, 1X/DAY
  9. LIPEGFILGRASTIM [Concomitant]
     Active Substance: LIPEGFILGRASTIM
     Indication: Ill-defined disorder
     Dosage: 6 MG, 24-HOURS POST CHEMOTHERAPY
  10. LOPERAMIDE [Concomitant]
     Active Substance: LOPERAMIDE
     Indication: Ill-defined disorder
     Dosage: 2 MG, AS NEEDED
  11. METOCLOPRAMIDE [Concomitant]
     Active Substance: METOCLOPRAMIDE
     Indication: Ill-defined disorder
     Dosage: 10 MG, AS NEEDED
  12. PALONOSETRON [Concomitant]
     Active Substance: PALONOSETRON
     Indication: Ill-defined disorder
     Dosage: UNK
  13. BENDROFLUMETHIAZIDE [Concomitant]
     Active Substance: BENDROFLUMETHIAZIDE
     Dosage: 2.5 MG, 1X/DAY
  14. OMEPRAZOLE [Concomitant]
     Active Substance: OMEPRAZOLE
     Dosage: 20 MG, 1X/DAY
  15. PERINDOPRIL [Concomitant]
     Active Substance: PERINDOPRIL
     Dosage: 6 MG, 1X/DAY
  16. BISOPROLOL [Concomitant]
     Active Substance: BISOPROLOL
     Dosage: 2.5 MG, 1X/DAY
  17. METFORMIN [Concomitant]
     Active Substance: METFORMIN HYDROCHLORIDE
     Dosage: 1 G, 2X/DAY
  18. PREDNISOLONE [Concomitant]
     Active Substance: PREDNISOLONE
     Dosage: 11 MG, 1X/DAY, CURRENTLY BEING REDUCED. REDUCING BY 1MG EVERY 5 DAYS UNTIL 5MG AND THE REDUCE SLOWER
  19. GLICLAZIDE [Concomitant]
     Active Substance: GLICLAZIDE
     Dosage: 80 MG, 2X/DAY
  20. DOXAZOSIN [Concomitant]
     Active Substance: DOXAZOSIN MESYLATE
     Dosage: 8 MG, 1X/DAY
  21. SERTRALINE [Concomitant]
     Active Substance: SERTRALINE HYDROCHLORIDE
     Dosage: 50 MG, 1X/DAY
  22. DAPAGLIFLOZIN [Concomitant]
     Active Substance: DAPAGLIFLOZIN
     Dosage: 10 MG, 1X/DAY
  23. MORPHINE SULFATE [Concomitant]
     Active Substance: MORPHINE SULFATE
     Dosage: 5 MG, (1-2 PER DAY)
  24. FELODIPINE [Concomitant]
     Active Substance: FELODIPINE
     Dosage: 5 MG, 2X/DAY
  25. ORAMORPH SR SUSTAINED RELEASE [Concomitant]
     Active Substance: MORPHINE SULFATE
     Dosage: AS NEEDED

REACTIONS (4)
  - Cardiac arrest [Fatal]
  - Anaphylactic reaction [Fatal]
  - Arteriosclerosis coronary artery [Fatal]
  - Myocardial infarction [Fatal]

NARRATIVE: CASE EVENT DATE: 20210317
